FAERS Safety Report 5280716-8 (Version None)
Quarter: 2007Q1

REPORT INFORMATION
  Report Type: 
  Country: None (occurrence: None)
  Receive Date: 20061221
  Receipt Date: 20061009
  Transmission Date: 20070707
  Serious: No
  Sender: FDA-Public Use
  Company Number: US-CVT-062048

PATIENT
  Age: 83 Year
  Sex: Male
  Weight: 95.2 kg

DRUGS (7)
  1. RANEXA [Suspect]
     Indication: ANGINA PECTORIS
     Dosage: 500 MG, BID, ORAL
     Route: 048
     Dates: start: 20060728
  2. METOPROLOL TARTRATE [Concomitant]
  3. DIOVAN [Concomitant]
  4. LESCOL [Concomitant]
  5. ISOSORBIDE MONONITRATE [Concomitant]
  6. PLAVIX [Concomitant]
  7. ASPIRIN [Concomitant]

REACTIONS (2)
  - DIZZINESS [None]
  - FATIGUE [None]
